FAERS Safety Report 25497932 (Version 1)
Quarter: 2025Q3

REPORT INFORMATION
  Report Type: Spontaneous
  Country: EU (occurrence: EU)
  Receive Date: 20250701
  Receipt Date: 20250701
  Transmission Date: 20251020
  Serious: Yes (Other)
  Sender: BAXTER
  Company Number: EU-EMA-DD-20180319-faizanevprod-105253

PATIENT
  Age: 19 Year
  Sex: Female

DRUGS (32)
  1. CYCLOPHOSPHAMIDE [Suspect]
     Active Substance: CYCLOPHOSPHAMIDE
     Indication: Acute lymphocytic leukaemia
     Route: 042
  2. CYCLOPHOSPHAMIDE [Suspect]
     Active Substance: CYCLOPHOSPHAMIDE
     Route: 042
  3. CYCLOPHOSPHAMIDE [Suspect]
     Active Substance: CYCLOPHOSPHAMIDE
     Route: 042
  4. LENOGRASTIM [Suspect]
     Active Substance: LENOGRASTIM
     Indication: Acute lymphocytic leukaemia
     Route: 058
  5. LENOGRASTIM [Suspect]
     Active Substance: LENOGRASTIM
     Route: 058
  6. LENOGRASTIM [Suspect]
     Active Substance: LENOGRASTIM
     Dosage: 5 MUG/KG, QD (CYCLIC CYCLE 3)
     Route: 058
  7. LENOGRASTIM [Suspect]
     Active Substance: LENOGRASTIM
     Route: 058
  8. LENOGRASTIM [Suspect]
     Active Substance: LENOGRASTIM
     Route: 065
  9. LENOGRASTIM [Suspect]
     Active Substance: LENOGRASTIM
     Route: 065
  10. CYTARABINE [Suspect]
     Active Substance: CYTARABINE
     Indication: Acute lymphocytic leukaemia
     Route: 042
  11. CYTARABINE [Suspect]
     Active Substance: CYTARABINE
     Route: 058
  12. CYTARABINE [Suspect]
     Active Substance: CYTARABINE
     Route: 042
  13. CYTARABINE [Suspect]
     Active Substance: CYTARABINE
     Route: 058
  14. BLINATUMOMAB [Suspect]
     Active Substance: BLINATUMOMAB
     Indication: Acute lymphocytic leukaemia
     Route: 042
     Dates: start: 20161220
  15. FLUDARABINE [Suspect]
     Active Substance: FLUDARABINE PHOSPHATE
     Indication: Acute lymphocytic leukaemia
     Route: 065
     Dates: start: 20150904
  16. PREDNISONE [Suspect]
     Active Substance: PREDNISONE
     Indication: Acute lymphocytic leukaemia
     Route: 048
  17. METHOTREXATE [Suspect]
     Active Substance: METHOTREXATE
     Indication: Acute lymphocytic leukaemia
     Route: 042
  18. VINCRISTINE SULFATE [Suspect]
     Active Substance: VINCRISTINE SULFATE
     Indication: Acute lymphocytic leukaemia
     Route: 042
  19. BLINCYTO [Suspect]
     Active Substance: BLINATUMOMAB
     Indication: Acute lymphocytic leukaemia
     Route: 042
     Dates: start: 20161220
  20. BUSULFAN [Suspect]
     Active Substance: BUSULFAN
     Indication: Acute lymphocytic leukaemia
     Route: 042
     Dates: start: 20150904
  21. IDARUBICIN [Suspect]
     Active Substance: IDARUBICIN
     Indication: Acute lymphocytic leukaemia
     Route: 042
  22. THIOTEPA [Suspect]
     Active Substance: THIOTEPA
     Indication: Acute lymphocytic leukaemia
     Route: 065
     Dates: start: 20150904
  23. DEXAMETHASONE SODIUM PHOSPHATE [Suspect]
     Active Substance: DEXAMETHASONE SODIUM PHOSPHATE
     Indication: Acute lymphocytic leukaemia
     Route: 042
  24. DEXAMETHASONE SODIUM PHOSPHATE [Suspect]
     Active Substance: DEXAMETHASONE SODIUM PHOSPHATE
     Route: 048
  25. DEXAMETHASONE SODIUM PHOSPHATE [Suspect]
     Active Substance: DEXAMETHASONE SODIUM PHOSPHATE
     Route: 042
  26. FILGRASTIM [Suspect]
     Active Substance: FILGRASTIM
     Indication: Acute lymphocytic leukaemia
     Route: 058
  27. FILGRASTIM [Suspect]
     Active Substance: FILGRASTIM
     Route: 058
  28. FILGRASTIM [Suspect]
     Active Substance: FILGRASTIM
     Route: 065
  29. FILGRASTIM [Suspect]
     Active Substance: FILGRASTIM
     Route: 058
  30. LEUCOVORIN [Suspect]
     Active Substance: LEUCOVORIN\LEUCOVORIN CALCIUM
     Indication: Acute lymphocytic leukaemia
     Route: 042
  31. MERCAPTOPURINE [Suspect]
     Active Substance: MERCAPTOPURINE
     Indication: Acute lymphocytic leukaemia
     Route: 048
  32. INOTUZUMAB OZOGAMICIN [Concomitant]
     Active Substance: INOTUZUMAB OZOGAMICIN
     Route: 065

REACTIONS (4)
  - Acute lymphocytic leukaemia recurrent [Unknown]
  - Neurotoxicity [Recovered/Resolved]
  - Neoplasm recurrence [Unknown]
  - Seizure [Recovered/Resolved]
